FAERS Safety Report 5374002-5 (Version None)
Quarter: 2007Q2

REPORT INFORMATION
  Report Type: 
  Country: None (occurrence: None)
  Receive Date: 20070628
  Receipt Date: 20070621
  Transmission Date: 20071010
  Serious: Yes (Death)
  Sender: FDA-Public Use
  Company Number: FR-MERCK-0507FRA00001

PATIENT
  Age: 56 Year
  Sex: Male
  Weight: 80 kg

DRUGS (6)
  1. ZETIA [Suspect]
     Indication: HYPERCHOLESTEROLAEMIA
     Route: 048
     Dates: start: 20050607, end: 20050627
  2. CRESTOR [Suspect]
     Indication: HYPERCHOLESTEROLAEMIA
     Route: 048
     Dates: start: 20050602, end: 20050627
  3. COVERSYL (PERINDOPRIL ERBUMINE) [Concomitant]
     Indication: HYPERTENSION
     Route: 048
     Dates: start: 19920101, end: 20050627
  4. TENORMIN [Concomitant]
     Indication: HYPERTENSION
     Route: 048
     Dates: start: 19920101, end: 20050627
  5. ADALAT [Concomitant]
     Indication: HYPERTENSION
     Route: 048
     Dates: start: 19920101, end: 20050627
  6. PLAVIX [Concomitant]
     Indication: THROMBOSIS PROPHYLAXIS
     Route: 048
     Dates: start: 19920101, end: 20050627

REACTIONS (1)
  - CARDIAC ARREST [None]
